FAERS Safety Report 7438180-6 (Version None)
Quarter: 2011Q2

REPORT INFORMATION
  Report Type: 
  Country: None (occurrence: None)
  Receive Date: 20110426
  Receipt Date: 20110419
  Transmission Date: 20111010
  Serious: Yes (Other)
  Sender: FDA-Public Use
  Company Number: DE-ELI_LILLY_AND_COMPANY-DE201104005616

PATIENT
  Sex: Female

DRUGS (4)
  1. GLUCOPHAGE [Concomitant]
     Dosage: UNK
     Dates: start: 19920101
  2. AMARYL [Concomitant]
     Dosage: UNK
     Route: 048
     Dates: start: 19920101
  3. INSULIN [Concomitant]
     Dosage: UNK
     Dates: start: 19920101
  4. EXENATIDE [Suspect]
     Indication: DIABETES MELLITUS
     Dosage: 10 UG, UNK
     Route: 058

REACTIONS (4)
  - SUDDEN HEARING LOSS [None]
  - OFF LABEL USE [None]
  - BLOOD GLUCOSE INCREASED [None]
  - INFECTION [None]
